FAERS Safety Report 20745505 (Version 1)
Quarter: 2022Q2

REPORT INFORMATION
  Report Type: Spontaneous
  Country: US (occurrence: None)
  Receive Date: 20220423
  Receipt Date: 20220423
  Transmission Date: 20220721
  Serious: Yes (Other)
  Sender: FDA-Public Use
  Company Number: None

PATIENT
  Age: 39 Year
  Sex: Female
  Weight: 51.3 kg

DRUGS (5)
  1. CIPRO [Suspect]
     Active Substance: CIPROFLOXACIN HYDROCHLORIDE
     Indication: Urinary tract infection
     Dosage: OTHER QUANTITY : 1 TABLET(S);?FREQUENCY : EVERY 12 HOURS;?
     Route: 048
     Dates: start: 20220419, end: 20220423
  2. PHENAZOPYRIDINE [Suspect]
     Active Substance: PHENAZOPYRIDINE
  3. VITAMINS [Concomitant]
     Active Substance: VITAMINS
  4. OREGANO LEAF OIL [Concomitant]
     Active Substance: OREGANO LEAF OIL
  5. FENUGREEK SEED [Concomitant]
     Active Substance: FENUGREEK SEED

REACTIONS (6)
  - Rash [None]
  - Headache [None]
  - Diarrhoea [None]
  - Balance disorder [None]
  - Confusional state [None]
  - Memory impairment [None]

NARRATIVE: CASE EVENT DATE: 20220422
